FAERS Safety Report 17410896 (Version 1)
Quarter: 2020Q1

REPORT INFORMATION
  Report Type: Spontaneous
  Country: GB (occurrence: GB)
  Receive Date: 20200212
  Receipt Date: 20200212
  Transmission Date: 20200409
  Serious: Yes (Other)
  Sender: FDA-Public Use
  Company Number: GB-BAUSCH-BL-2020-002982

PATIENT
  Age: 83 Year
  Sex: Female

DRUGS (13)
  1. PREDNISOLONE. [Suspect]
     Active Substance: PREDNISOLONE
     Indication: ASTHMA
  2. SYMBICORT [Suspect]
     Active Substance: BUDESONIDE\FORMOTEROL FUMARATE DIHYDRATE
     Indication: ASTHMA
     Route: 055
  3. DOXYCYCLINE. [Suspect]
     Active Substance: DOXYCYCLINE
     Indication: LOWER RESPIRATORY TRACT INFECTION
     Route: 048
  4. MAGNESIUM SULPHATE [Suspect]
     Active Substance: MAGNESIUM SULFATE
     Indication: LOWER RESPIRATORY TRACT INFECTION
     Route: 042
  5. SALBUTAMOL [Suspect]
     Active Substance: ALBUTEROL
     Indication: ASTHMA
     Dosage: FREQUENCY OF SALBUTAMOL NEBULISERS WAS INCREASED
     Route: 055
  6. TERBUTALINE SULPHATE [Suspect]
     Active Substance: TERBUTALINE SULFATE
     Indication: ASTHMA
     Dosage: AS REQUIRED
     Route: 065
  7. MAGNESIUM SULPHATE [Suspect]
     Active Substance: MAGNESIUM SULFATE
     Indication: ASTHMA
  8. SALBUTAMOL [Suspect]
     Active Substance: ALBUTEROL
     Indication: LOWER RESPIRATORY TRACT INFECTION
     Dosage: NEBULISED
     Route: 055
  9. PREDNISOLONE. [Suspect]
     Active Substance: PREDNISOLONE
     Indication: LOWER RESPIRATORY TRACT INFECTION
     Route: 048
  10. DOXYCYCLINE. [Suspect]
     Active Substance: DOXYCYCLINE
     Indication: ASTHMA
  11. FORMOTEROL FUMARATE [Suspect]
     Active Substance: FORMOTEROL FUMARATE
     Indication: ASTHMA
     Route: 065
  12. AMINOPHYLLINE. [Suspect]
     Active Substance: AMINOPHYLLINE
     Indication: ASTHMA
     Route: 042
  13. AMINOPHYLLINE. [Suspect]
     Active Substance: AMINOPHYLLINE
     Indication: LOWER RESPIRATORY TRACT INFECTION
     Dosage: LOADING DOSE
     Route: 042

REACTIONS (1)
  - Lactic acidosis [Recovered/Resolved]
